FAERS Safety Report 4976427-6 (Version None)
Quarter: 2006Q2

REPORT INFORMATION
  Report Type: 
  Country: None (occurrence: None)
  Receive Date: 20060412
  Receipt Date: 20060330
  Transmission Date: 20061013
  Serious: Yes (Hospitalization)
  Sender: FDA-Public Use
  Company Number: MIN-00013

PATIENT
  Age: 15 Year
  Sex: Male

DRUGS (3)
  1. MINOCYCLINE HCL [Suspect]
     Indication: ACNE
     Dosage: 100 MG QD ORALLY
     Route: 048
  2. IBUPROFEN [Concomitant]
  3. NAPROXEN [Concomitant]

REACTIONS (12)
  - ALANINE AMINOTRANSFERASE INCREASED [None]
  - ASPARTATE AMINOTRANSFERASE INCREASED [None]
  - BLOOD BILIRUBIN INCREASED [None]
  - COAGULOPATHY [None]
  - CONTUSION [None]
  - FIBROMUSCULAR DYSPLASIA [None]
  - GILBERT'S SYNDROME [None]
  - HYPERTENSION [None]
  - INTERNATIONAL NORMALISED RATIO INCREASED [None]
  - RENAL ARTERY STENOSIS [None]
  - SPLENOMEGALY [None]
  - THROMBOCYTOPENIA [None]
